FAERS Safety Report 13742587 (Version 1)
Quarter: 2017Q3

REPORT INFORMATION
  Report Type: Spontaneous
  Country: JP (occurrence: FR)
  Receive Date: 20170711
  Receipt Date: 20170711
  Transmission Date: 20171127
  Serious: Yes (Other)
  Sender: FDA-Public Use
  Company Number: PHHY2012FR001059

PATIENT

DRUGS (2)
  1. CARTEOLOL [Suspect]
     Active Substance: CARTEOLOL
     Indication: OCULAR HYPERTENSION
     Route: 047
     Dates: start: 201012
  2. TRAVATAN [Concomitant]
     Active Substance: TRAVOPROST
     Dates: start: 201012

REACTIONS (4)
  - Peyronie^s disease [Unknown]
  - Painful erection [Unknown]
  - Disease recurrence [Unknown]
  - Penis disorder [Unknown]
